FAERS Safety Report 15371899 (Version 1)
Quarter: 2018Q3

REPORT INFORMATION
  Report Type: Spontaneous
  Country: FR (occurrence: FR)
  Receive Date: 20180911
  Receipt Date: 20180911
  Transmission Date: 20181010
  Serious: Yes (Hospitalization)
  Sender: FDA-Public Use
  Company Number: FR-MYLANLABS-2018M1066125

PATIENT
  Age: 11 Year
  Sex: Male
  Weight: 65 kg

DRUGS (3)
  1. ZOPHREN                            /00955302/ [Concomitant]
     Active Substance: ONDANSETRON
     Indication: NAUSEA
     Dosage: 16 MG, QD
     Route: 042
     Dates: start: 20180326
  2. METHOTREXATE. [Suspect]
     Active Substance: METHOTREXATE
     Indication: CHEMOTHERAPY
     Dosage: 12 G/M2
     Route: 042
  3. FIDAXOMICIN [Concomitant]
     Active Substance: FIDAXOMICIN
     Indication: PRODUCT USED FOR UNKNOWN INDICATION
     Dosage: UNK

REACTIONS (2)
  - Pancytopenia [Recovering/Resolving]
  - Cheilitis [Recovering/Resolving]

NARRATIVE: CASE EVENT DATE: 20180330
